FAERS Safety Report 19816352 (Version 1)
Quarter: 2021Q3

REPORT INFORMATION
  Report Type: Spontaneous
  Country: DE (occurrence: DE)
  Receive Date: 20210909
  Receipt Date: 20210909
  Transmission Date: 20211014
  Serious: Yes (Hospitalization, Other)
  Sender: FDA-Public Use
  Company Number: DE-GILEAD-2021-0547866

PATIENT
  Age: 32 Year
  Sex: Male
  Weight: 79.3 kg

DRUGS (3)
  1. ACETYLSALICYLSAEURE [Concomitant]
     Active Substance: ASPIRIN
     Dosage: 100 MG, 1?0?0?0, TABLETTEN
     Route: 048
  2. BIKTARVY [Suspect]
     Active Substance: BICTEGRAVIR SODIUM\EMTRICITABINE\TENOFOVIR ALAFENAMIDE FUMARATE
     Indication: ASYMPTOMATIC HIV INFECTION
     Dosage: 50/200/25 MG, 1?0?0?0, TABLET
     Route: 048
  3. PIFELTRO [Suspect]
     Active Substance: DORAVIRINE
     Indication: PRODUCT USED FOR UNKNOWN INDICATION
     Dosage: 100 MG, 1?0?0?0, TABLETTEN
     Route: 048

REACTIONS (4)
  - Family stress [Unknown]
  - Suicidal ideation [Unknown]
  - Stress at work [Unknown]
  - Depressed mood [Unknown]
